FAERS Safety Report 5785436-9 (Version None)
Quarter: 2008Q2

REPORT INFORMATION
  Report Type: 
  Country: None (occurrence: None)
  Receive Date: 20080624
  Receipt Date: 20070515
  Transmission Date: 20081010
  Serious: No
  Sender: FDA-Public Use
  Company Number: US-ASTRAZENECA-2007UW12175

PATIENT
  Age: 6 Year
  Sex: Male
  Weight: 23.6 kg

DRUGS (4)
  1. PULMICORT FLEXHALER [Suspect]
     Indication: HYPERSENSITIVITY
     Route: 055
     Dates: start: 20070501
  2. PULMICORT FLEXHALER [Suspect]
     Indication: ASTHMA
     Route: 055
     Dates: start: 20070501
  3. XOPENIX [Concomitant]
  4. SINGULAIR [Concomitant]

REACTIONS (3)
  - ASTHMA [None]
  - CROUP INFECTIOUS [None]
  - EYE HAEMORRHAGE [None]
